FAERS Safety Report 7215644-1 (Version None)
Quarter: 2011Q1

REPORT INFORMATION
  Report Type: 
  Country: None (occurrence: None)
  Receive Date: 20110107
  Receipt Date: 20110105
  Transmission Date: 20110831
  Serious: Yes (Hospitalization)
  Sender: FDA-Public Use
  Company Number: JP-ACTELION-A-CH2011-43453

PATIENT
  Sex: Female
  Weight: 10 kg

DRUGS (8)
  1. BOSENTAN TABLET 62.5 MG JPN [Suspect]
     Dosage: 10 MG, BID
     Route: 048
     Dates: start: 20090314, end: 20090315
  2. WARFARIN POTASSIUM [Concomitant]
  3. BOSENTAN TABLET 62.5 MG JPN [Suspect]
     Indication: PULMONARY ARTERIAL HYPERTENSION
     Dosage: 20 MG, BID
     Route: 048
     Dates: start: 20090316, end: 20090414
  4. FUROSEMIDE [Concomitant]
  5. CANDESARTAN CILEXETIL [Concomitant]
  6. SPIRONOLACTONE [Concomitant]
  7. OXYGEN [Concomitant]
  8. ASPIRIN [Concomitant]

REACTIONS (3)
  - PARACENTESIS [None]
  - CHYLOTHORAX [None]
  - THERAPEUTIC EMBOLISATION [None]
